FAERS Safety Report 9520514 (Version 1)
Quarter: 2013Q3

REPORT INFORMATION
  Report Type: Spontaneous
  Country: IN (occurrence: IN)
  Receive Date: 20130913
  Receipt Date: 20130913
  Transmission Date: 20140515
  Serious: Yes (Hospitalization)
  Sender: FDA-Public Use
  Company Number: IN-MYLANLABS-2013S1019800

PATIENT
  Age: 46 Year
  Sex: Female
  Weight: 83 kg

DRUGS (9)
  1. RISPERIDONE [Suspect]
     Indication: ACUTE PSYCHOSIS
     Dosage: UP TO 3MG/DAY
     Route: 065
  2. OLANZAPINE [Suspect]
     Indication: ACUTE PSYCHOSIS
     Dosage: UP TO 20MG/DAY
     Route: 065
  3. TRIFLUOPERAZINE [Suspect]
     Indication: PSYCHOTIC DISORDER
     Dosage: 15MG/DAY; SUBSEQUENTLY CROSS-TAPERED TO QUETIAPINE
     Route: 065
  4. QUETIAPINE [Suspect]
     Indication: PSYCHOTIC DISORDER
     Dosage: CROSS-TAPER FROM TRIFLUOPERAZINE; INCREASED TO 300MG/DAY THEN LATER INCREASED TO 600MG/DAY
     Route: 065
  5. QUETIAPINE [Suspect]
     Indication: PSYCHOTIC DISORDER
     Dosage: 600MG/DAY
     Route: 065
  6. CLONAZEPAM [Suspect]
     Indication: PSYCHOTIC DISORDER
     Dosage: 6MG/DAY
     Route: 065
  7. ZIPRASIDONE [Suspect]
     Indication: PSYCHOTIC DISORDER
     Dosage: UP TO 120MG/DAY; LATER INCREASED TO 140MG/DAY
     Route: 065
  8. ZIPRASIDONE [Suspect]
     Indication: PSYCHOTIC DISORDER
     Dosage: 140MG/DAY
     Route: 065
  9. SERTRALINE [Concomitant]
     Indication: DEPRESSION
     Dosage: 100MG/DAY
     Route: 065

REACTIONS (7)
  - Somatoform disorder pregnancy [Recovering/Resolving]
  - Hyperprolactinaemia [Recovered/Resolved]
  - Obesity [Recovering/Resolving]
  - Metabolic syndrome [Recovering/Resolving]
  - Electrocardiogram change [Unknown]
  - Amenorrhoea [Unknown]
  - Galactorrhoea [Unknown]
